FAERS Safety Report 17115763 (Version 1)
Quarter: 2019Q4

REPORT INFORMATION
  Report Type: Report from Study
  Country: BE (occurrence: BE)
  Receive Date: 20191205
  Receipt Date: 20191205
  Transmission Date: 20200122
  Serious: No
  Sender: FDA-Public Use
  Company Number: BE-KARYOPHARM THERAPEUTICS, INC.-2019KPT000759

PATIENT
  Age: 62 Year
  Sex: Male

DRUGS (2)
  1. SELINEXOR [Suspect]
     Active Substance: SELINEXOR
     Indication: PLASMA CELL MYELOMA
     Dosage: UNK
     Dates: start: 20190930
  2. DEXAMETHASONE ORGANON [Concomitant]
     Indication: PLASMA CELL MYELOMA
     Dosage: UNK
     Dates: start: 20190930

REACTIONS (3)
  - Diarrhoea [Unknown]
  - Asthenia [Unknown]
  - Disease progression [Unknown]
